FAERS Safety Report 20665937 (Version 2)
Quarter: 2022Q2

REPORT INFORMATION
  Report Type: Spontaneous
  Country: US (occurrence: US)
  Receive Date: 20220403
  Receipt Date: 20220405
  Transmission Date: 20220721
  Serious: Yes (Hospitalization, Other)
  Sender: FDA-Public Use
  Company Number: US-BRISTOL-MYERS SQUIBB COMPANY-2022-010354

PATIENT
  Age: 78 Year
  Sex: Male
  Weight: 91 kg

DRUGS (1)
  1. POMALYST [Suspect]
     Active Substance: POMALIDOMIDE
     Indication: Plasma cell myeloma
     Dosage: DOSE : 3 MG;     FREQ : EVERY OTHER DAY
     Route: 048
     Dates: start: 202107

REACTIONS (3)
  - Haemorrhage [Unknown]
  - Asthenia [Not Recovered/Not Resolved]
  - Gait disturbance [Unknown]

NARRATIVE: CASE EVENT DATE: 20220319
